FAERS Safety Report 11747497 (Version 9)
Quarter: 2016Q2

REPORT INFORMATION
  Report Type: Spontaneous
  Country: US (occurrence: US)
  Receive Date: 20151117
  Receipt Date: 20160516
  Transmission Date: 20160815
  Serious: Yes (Other)
  Sender: FDA-Public Use
  Company Number: US-PFIZER INC-2015354643

PATIENT
  Age: 77 Year
  Sex: Female
  Weight: 52.61 kg

DRUGS (15)
  1. METOPROLOL. [Concomitant]
     Active Substance: METOPROLOL
     Indication: HYPERTENSION
  2. SUTENT [Suspect]
     Active Substance: SUNITINIB MALATE
     Indication: RENAL CANCER STAGE IV
     Dosage: 50 MG DAILY, CYCLIC (2 WEEKS ON/1 WEEK OFF)
     Route: 048
     Dates: start: 20150710, end: 201603
  3. GABAPENTIN. [Concomitant]
     Active Substance: GABAPENTIN
     Indication: NERVE INJURY
     Dosage: 300 MG, 2X/DAY
     Dates: start: 20150505
  4. SUTENT [Suspect]
     Active Substance: SUNITINIB MALATE
     Dosage: 37.5 MG, UNK
     Dates: start: 201603
  5. XGEVA [Concomitant]
     Active Substance: DENOSUMAB
     Indication: BONE MARROW DISORDER
     Dosage: UNKNOWN DOSAGE, SHOT ONCE A MONTH
     Dates: start: 201507
  6. PROCRIT [Concomitant]
     Active Substance: ERYTHROPOIETIN
     Indication: HAEMOGLOBIN DECREASED
     Dosage: SHOT, UNKNOWN DOSAGE AS NEEDED (GETS A PROCRIT SHOT, IF THE HEMOGLOBIN IS BELOW 11)
     Dates: start: 201501
  7. FENOFIBRATE. [Concomitant]
     Active Substance: FENOFIBRATE
     Indication: BLOOD TRIGLYCERIDES INCREASED
     Dosage: 134 MG CAPSULE, UNK, FOR THE PAST 15-20 YEARS
  8. TYLENOL [Concomitant]
     Active Substance: ACETAMINOPHEN
     Indication: MUSCLE DISORDER
     Dosage: 2 DF, UNK (2 DF, UNK (TWO IN THE MORNING))
     Dates: start: 20150509
  9. PROCRIT [Concomitant]
     Active Substance: ERYTHROPOIETIN
     Indication: BLOOD GLUCOSE ABNORMAL
  10. VITAMIN B12 [Concomitant]
     Active Substance: CYANOCOBALAMIN
     Dosage: UNDER THE TONGUE 5000 MG TWICE A DAY
     Route: 060
  11. GABAPENTIN. [Concomitant]
     Active Substance: GABAPENTIN
     Indication: PROCEDURAL PAIN
  12. VALSARTAN. [Concomitant]
     Active Substance: VALSARTAN
     Dosage: UNK
  13. SUTENT [Suspect]
     Active Substance: SUNITINIB MALATE
     Dosage: 50 MG, CYCLIC (2 WEEKS ON/1 WEEK OFF)
     Route: 048
     Dates: start: 201509
  14. METOPROLOL. [Concomitant]
     Active Substance: METOPROLOL
     Indication: TACHYCARDIA
     Dosage: ONE 25 MG TABLET, 1X/DAY (AT NIGHT)
  15. METOPROLOL. [Concomitant]
     Active Substance: METOPROLOL
     Indication: CARDIAC DISORDER

REACTIONS (14)
  - Malaise [Unknown]
  - Ageusia [Recovered/Resolved]
  - Memory impairment [Unknown]
  - Nasopharyngitis [Unknown]
  - Alopecia [Recovering/Resolving]
  - Yellow skin [Not Recovered/Not Resolved]
  - Blood pressure increased [Not Recovered/Not Resolved]
  - Oral pain [Recovered/Resolved]
  - Disease progression [Recovering/Resolving]
  - Nasal congestion [Unknown]
  - Gastrooesophageal reflux disease [Not Recovered/Not Resolved]
  - Renal cancer stage IV [Recovering/Resolving]
  - Palmar-plantar erythrodysaesthesia syndrome [Not Recovered/Not Resolved]
  - Diarrhoea [Recovering/Resolving]

NARRATIVE: CASE EVENT DATE: 201507
